FAERS Safety Report 16960720 (Version 2)
Quarter: 2020Q1

REPORT INFORMATION
  Report Type: Spontaneous
  Country: US (occurrence: US)
  Receive Date: 20191025
  Receipt Date: 20200116
  Transmission Date: 20200409
  Serious: Yes (Other)
  Sender: FDA-Public Use
  Company Number: US-009507513-1910USA014036

PATIENT
  Sex: Female

DRUGS (3)
  1. KEYTRUDA [Suspect]
     Active Substance: PEMBROLIZUMAB
     Dosage: FOUR CYCLES
     Dates: end: 20190930
  2. ALIMTA [Suspect]
     Active Substance: PEMETREXED DISODIUM
     Dosage: FOUR CYCLES
  3. CARBOPLATIN. [Suspect]
     Active Substance: CARBOPLATIN
     Dosage: FOUR CYCLES

REACTIONS (1)
  - Neutropenia [Not Recovered/Not Resolved]
